FAERS Safety Report 9174039 (Version 1)
Quarter: 2013Q1

REPORT INFORMATION
  Report Type: Spontaneous
  Country: US (occurrence: None)
  Receive Date: 20130313
  Receipt Date: 20130313
  Transmission Date: 20140127
  Serious: Yes (Other)
  Sender: FDA-Public Use
  Company Number: 3005174370-2013-00011

PATIENT
  Sex: Female

DRUGS (1)
  1. FLUORIDE [Suspect]
     Dosage: TOPICAL ORAL RINSE APPROX 1 WEEK
     Route: 061

REACTIONS (1)
  - Blood glucose increased [None]
